FAERS Safety Report 19475122 (Version 1)
Quarter: 2021Q2

REPORT INFORMATION
  Report Type: Spontaneous
  Country: US (occurrence: US)
  Receive Date: 20210629
  Receipt Date: 20210629
  Transmission Date: 20210717
  Serious: No
  Sender: FDA-Public Use
  Company Number: US-SA-2021SA210563

PATIENT
  Age: 23 Year
  Sex: Female

DRUGS (2)
  1. DUPIXENT [Suspect]
     Active Substance: DUPILUMAB
     Dosage: 300 MG, QOW
     Route: 058
  2. PFIZER?BIONTECH COVID?19 VACCINE [Suspect]
     Active Substance: TOZINAMERAN
     Indication: COVID-19 IMMUNISATION

REACTIONS (3)
  - Fatigue [Unknown]
  - COVID-19 [Unknown]
  - Dysphonia [Unknown]

NARRATIVE: CASE EVENT DATE: 2021
